FAERS Safety Report 13107065 (Version 1)
Quarter: 2017Q1

REPORT INFORMATION
  Report Type: Spontaneous
  Country: DE (occurrence: DE)
  Receive Date: 20170111
  Receipt Date: 20170111
  Transmission Date: 20170428
  Serious: Yes (Other)
  Sender: FDA-Public Use
  Company Number: DE-BAXTER-2016BAX064641

PATIENT
  Age: 59 Year
  Sex: Male

DRUGS (6)
  1. ISOFLURAN BAXTER [Suspect]
     Active Substance: ISOFLURANE
     Indication: OFF LABEL USE
     Dosage: SUPPLY INCREASED STEP BY STEP
     Route: 055
  2. ESKETAMINE [Concomitant]
     Active Substance: ESKETAMINE
     Indication: SEDATION
     Route: 042
  3. MIDAZOLAM [Concomitant]
     Active Substance: MIDAZOLAM HYDROCHLORIDE
     Indication: SEDATION
     Route: 042
  4. ISOFLURAN BAXTER [Suspect]
     Active Substance: ISOFLURANE
     Dosage: SUPPLY REDUCED UNTIL THE FET VALUE REACHED TARGET RANGE OF 0.6 TO 0.8%
     Route: 055
  5. ISOFLURAN BAXTER [Suspect]
     Active Substance: ISOFLURANE
     Indication: SEDATIVE THERAPY
     Dosage: VOLATILE ADMINISTRATION
     Route: 055
  6. MANNITOL. [Concomitant]
     Active Substance: MANNITOL
     Indication: INTRACRANIAL PRESSURE INCREASED
     Route: 065

REACTIONS (2)
  - Overdose [Recovering/Resolving]
  - Mydriasis [Recovering/Resolving]
